FAERS Safety Report 7988415-6 (Version None)
Quarter: 2011Q4

REPORT INFORMATION
  Report Type: 
  Country: None (occurrence: None)
  Receive Date: 20111216
  Receipt Date: 20111215
  Transmission Date: 20120403
  Serious: Yes (Other)
  Sender: FDA-Public Use
  Company Number: US-ROCHE-803106

PATIENT
  Sex: Female
  Weight: 54.48 kg

DRUGS (8)
  1. ACCUTANE [Suspect]
     Indication: ACNE
     Route: 065
     Dates: start: 20020321, end: 20021010
  2. ACCUTANE [Suspect]
     Route: 065
     Dates: start: 20031224, end: 20040622
  3. METOCLOPRAMIDE [Concomitant]
  4. ENPRESSE [Concomitant]
  5. PREVACID [Concomitant]
  6. FLUOXETINE [Concomitant]
  7. ZELNORM [Concomitant]
  8. DEXEDRINE [Concomitant]

REACTIONS (4)
  - INTESTINAL OBSTRUCTION [None]
  - GASTROINTESTINAL HYPOMOTILITY [None]
  - DEPRESSION [None]
  - ATTENTION DEFICIT/HYPERACTIVITY DISORDER [None]
